FAERS Safety Report 4680093-7 (Version None)
Quarter: 2005Q2

REPORT INFORMATION
  Report Type: 
  Country: None (occurrence: None)
  Receive Date: 20050602
  Receipt Date: 20050422
  Transmission Date: 20051028
  Serious: Yes (Other)
  Sender: FDA-Public Use
  Company Number: BR-BRISTOL-MYERS SQUIBB COMPANY-12982245

PATIENT
  Age: 74 Year
  Sex: Male

DRUGS (2)
  1. CEFEPIME HCL [Suspect]
     Indication: FEBRILE NEUTROPENIA
     Dosage: 4 GRAMS DAILY FOR 4 DAYS, THEN 6 GRAMS DAILY FOR 7 DAYS.
  2. METHOTREXATE [Concomitant]

REACTIONS (5)
  - AGITATION [None]
  - CONFUSIONAL STATE [None]
  - MYOCLONUS [None]
  - RENAL FAILURE [None]
  - SENSORY LOSS [None]
